FAERS Safety Report 5977671-1 (Version None)
Quarter: 2008Q4

REPORT INFORMATION
  Report Type: 
  Country: None (occurrence: None)
  Receive Date: 20081203
  Receipt Date: 20081118
  Transmission Date: 20090506
  Serious: Yes (Hospitalization)
  Sender: FDA-Public Use
  Company Number: IT-GENENTECH-272387

PATIENT
  Sex: Female

DRUGS (1)
  1. AVASTIN [Suspect]
     Indication: MACULOPATHY
     Dosage: 1.25 MG, QD
     Route: 031
     Dates: start: 20080515, end: 20080515

REACTIONS (1)
  - ENDOPHTHALMITIS [None]
